FAERS Safety Report 5952177-4 (Version None)
Quarter: 2008Q4

REPORT INFORMATION
  Report Type: 
  Country: None (occurrence: None)
  Receive Date: 20081113
  Receipt Date: 20080815
  Transmission Date: 20090506
  Serious: No
  Sender: FDA-Public Use
  Company Number: A0742854A

PATIENT
  Age: 56 Year
  Sex: Female

DRUGS (3)
  1. CARVEDILOL [Suspect]
     Indication: HYPERTENSION
     Route: 048
  2. COREG CR [Suspect]
     Indication: HYPERTENSION
     Dosage: 20MG PER DAY
     Route: 048
     Dates: start: 20080801, end: 20080801
  3. NO CONCURRENT MEDICATION [Concomitant]

REACTIONS (1)
  - HYPERTENSION [None]
